FAERS Safety Report 5200501-2 (Version None)
Quarter: 2007Q1

REPORT INFORMATION
  Report Type: 
  Country: None (occurrence: None)
  Receive Date: 20070105
  Receipt Date: 20061228
  Transmission Date: 20070707
  Serious: Yes (Other)
  Sender: FDA-Public Use
  Company Number: DE-ABBOTT-07P-062-0354673-00

PATIENT
  Sex: Male

DRUGS (1)
  1. ERGENYL TABLETS [Suspect]
     Indication: EPILEPSY
     Route: 048
     Dates: start: 19980101

REACTIONS (1)
  - HAEMOCHROMATOSIS [None]
